FAERS Safety Report 18140535 (Version 1)
Quarter: 2020Q3

REPORT INFORMATION
  Report Type: Spontaneous
  Country: BR (occurrence: BR)
  Receive Date: 20200812
  Receipt Date: 20200812
  Transmission Date: 20201103
  Serious: Yes (Other)
  Sender: FDA-Public Use
  Company Number: BR-PFIZER INC-2020306087

PATIENT
  Sex: Female

DRUGS (2)
  1. LYRICA [Suspect]
     Active Substance: PREGABALIN
     Dosage: 2 CAPSULES EVERY 12 HOURS
  2. NOVALGINA [Concomitant]
     Active Substance: METAMIZOLE SODIUM
     Dosage: UNK

REACTIONS (7)
  - Blood pressure increased [Unknown]
  - Drug hypersensitivity [Unknown]
  - Arthralgia [Unknown]
  - Dizziness [Unknown]
  - Sedation [Unknown]
  - Diabetes mellitus [Unknown]
  - Lethargy [Unknown]
